FAERS Safety Report 15048326 (Version 1)
Quarter: 2018Q2

REPORT INFORMATION
  Report Type: Spontaneous
  Country: GB (occurrence: GB)
  Receive Date: 20180622
  Receipt Date: 20180622
  Transmission Date: 20180711
  Serious: Yes (Hospitalization, Other)
  Sender: FDA-Public Use
  Company Number: GB-CONCORDIA PHARMACEUTICALS INC.-E2B_00012773

PATIENT
  Age: 50 Year
  Sex: Male

DRUGS (12)
  1. BASILIXIMAB [Concomitant]
     Active Substance: BASILIXIMAB
  2. INSULIN GLARGINE [Concomitant]
     Active Substance: INSULIN GLARGINE
  3. PREDNISOLONE. [Suspect]
     Active Substance: PREDNISOLONE
     Indication: RENAL TRANSPLANT
     Dosage: 7.5 MG, QD
     Route: 065
  4. TACROLIMUS. [Suspect]
     Active Substance: TACROLIMUS
     Indication: RENAL TRANSPLANT
     Dosage: 6 MG, BID
     Route: 065
  5. MYFORTIC [Suspect]
     Active Substance: MYCOPHENOLATE SODIUM
     Indication: RENAL TRANSPLANT
     Dosage: 540 MG, BID
     Route: 065
  6. COTRIMOXAZOLE [Concomitant]
     Active Substance: SULFAMETHOXAZOLE\TRIMETHOPRIM
  7. AMBISOME [Suspect]
     Active Substance: AMPHOTERICIN B
     Indication: CRYPTOCOCCUS TEST
     Dosage: 4 MG/KG, QD
     Route: 065
  8. VALGANCICLOVIR. [Concomitant]
     Active Substance: VALGANCICLOVIR
  9. ATORVASTATIN [Suspect]
     Active Substance: ATORVASTATIN
     Indication: PRODUCT USED FOR UNKNOWN INDICATION
     Dosage: 10 MG, QD
     Route: 065
  10. MYCOPHENOLATE MOFETIL. [Suspect]
     Active Substance: MYCOPHENOLATE MOFETIL
     Indication: RENAL TRANSPLANT
     Route: 065
  11. ACETYLSALICYLIC ACID [Concomitant]
     Active Substance: ASPIRIN
  12. RANITIDINE. [Concomitant]
     Active Substance: RANITIDINE

REACTIONS (11)
  - Headache [Unknown]
  - Optic discs blurred [Unknown]
  - Cryptococcosis [Recovered/Resolved]
  - Acute kidney injury [Unknown]
  - Diabetic retinopathy [Unknown]
  - Cytomegalovirus infection [Unknown]
  - Delayed graft function [Recovered/Resolved]
  - Toxicity to various agents [Unknown]
  - Escherichia urinary tract infection [Unknown]
  - Transplant dysfunction [Recovered/Resolved]
  - Cataract [Unknown]
